FAERS Safety Report 9130718 (Version 3)
Quarter: 2013Q1

REPORT INFORMATION
  Report Type: Spontaneous
  Country: CN (occurrence: CN)
  Receive Date: 20130301
  Receipt Date: 20130307
  Transmission Date: 20140127
  Serious: Yes (Hospitalization)
  Sender: FDA-Public Use
  Company Number: CN-MERCK-1303CHN000041

PATIENT
  Sex: 0

DRUGS (2)
  1. RIBAVIRIN [Suspect]
     Indication: HEPATITIS C
     Dosage: 900 MG, QD
  2. [COMPOSITION UNSPECIFIED] [Concomitant]
     Indication: PROPHYLAXIS

REACTIONS (1)
  - Colitis ulcerative [Recovered/Resolved]
